FAERS Safety Report 10228841 (Version 1)
Quarter: 2014Q2

REPORT INFORMATION
  Report Type: Spontaneous
  Country: US (occurrence: US)
  Receive Date: 20140610
  Receipt Date: 20140610
  Transmission Date: 20141212
  Serious: No
  Sender: FDA-Public Use
  Company Number: US-GILEAD-2014-0104546

PATIENT
  Sex: Female
  Weight: 68.27 kg

DRUGS (2)
  1. SOVALDI [Suspect]
     Indication: HEPATITIS C
     Dosage: 400 MG, QD
     Route: 048
     Dates: start: 201403
  2. RIBASPHERE [Suspect]
     Indication: HEPATITIS C
     Dosage: UNK UNK, BID
     Route: 065
     Dates: start: 201403

REACTIONS (10)
  - White blood cell count decreased [Unknown]
  - Weight decreased [Unknown]
  - Chills [Unknown]
  - Headache [Unknown]
  - Dyspnoea [Unknown]
  - Jaundice [Unknown]
  - Pyrexia [Unknown]
  - Back pain [Unknown]
  - Anaemia [Unknown]
  - Fatigue [Unknown]
